FAERS Safety Report 8488900-7 (Version None)
Quarter: 2012Q3

REPORT INFORMATION
  Report Type: 
  Country: None (occurrence: None)
  Receive Date: 20120705
  Receipt Date: 20120702
  Transmission Date: 20120928
  Serious: Yes (Hospitalization, Congenital Anomaly, Other)
  Sender: FDA-Public Use
  Company Number: US-PFIZER INC-2011289827

PATIENT
  Sex: Female
  Weight: 2.9 kg

DRUGS (12)
  1. MULTI-VITAMINS [Concomitant]
     Dosage: UNK
     Route: 064
  2. AMOXIL [Concomitant]
     Dosage: 500 MG, 3X/DAY
     Route: 064
  3. FOLIC ACID [Concomitant]
     Dosage: UNK
     Route: 064
  4. ZOLOFT [Suspect]
     Indication: DEPRESSION
  5. PROMETHAZINE [Concomitant]
     Indication: NAUSEA
     Dosage: 12.5 MG, 1X/DAY
     Route: 064
     Dates: start: 20040202
  6. VITAMIN B6 [Concomitant]
     Indication: NAUSEA
     Dosage: 100 MG, 1X/DAY
     Route: 064
  7. FERROUS FUMARATE [Concomitant]
     Dosage: UNK
     Route: 064
  8. ZOLOFT [Suspect]
     Indication: ANXIETY
     Dosage: 50 MG, 1X/DAY
     Route: 064
     Dates: start: 20031023
  9. ROBITUSSIN A-C /OLD FORM/ [Concomitant]
     Dosage: 1 ML, 4X/DAY
     Route: 064
  10. ZOLOFT [Suspect]
     Indication: AFFECTIVE DISORDER
  11. ZYRTEC [Concomitant]
     Indication: HYPERSENSITIVITY
     Dosage: 10 MG,DAILY PRN
     Route: 064
  12. PROMETHAZINE [Concomitant]
     Indication: VOMITING

REACTIONS (13)
  - MATERNAL EXPOSURE TIMING UNSPECIFIED [None]
  - HEART DISEASE CONGENITAL [None]
  - VENTRICULAR SEPTAL DEFECT [None]
  - MITRAL VALVE INCOMPETENCE [None]
  - ATELECTASIS NEONATAL [None]
  - PULMONARY OEDEMA NEONATAL [None]
  - PULMONARY ARTERY STENOSIS CONGENITAL [None]
  - AORTIC STENOSIS [None]
  - TRANSPOSITION OF THE GREAT VESSELS [None]
  - ATRIAL SEPTAL DEFECT [None]
  - TRICUSPID VALVE INCOMPETENCE [None]
  - RIGHT ATRIAL DILATATION [None]
  - LEFT VENTRICULAR HYPERTROPHY [None]
